FAERS Safety Report 9783253 (Version 1)
Quarter: 2013Q4

REPORT INFORMATION
  Report Type: Spontaneous
  Country: US (occurrence: None)
  Receive Date: 20131223
  Receipt Date: 20131223
  Transmission Date: 20140711
  Serious: Yes (Other)
  Sender: FDA-Public Use
  Company Number: 2013US00830

PATIENT
  Sex: Female

DRUGS (5)
  1. EPIRUBICIN [Suspect]
     Indication: HER-2 POSITIVE BREAST CANCER
     Dosage: 75 MG/M2, ON DAY 1 OF A 21 DAY CYCLE FOR FOUR CYCLES, INTRAVENOUS
     Route: 042
  2. FLUOROURACIL [Suspect]
     Indication: HER-2 POSITIVE BREAST CANCER
     Dosage: 500 MG/M2 1 IN 21 DAY CYCLE FOR FOUR CYCLES,  INTRAVENOUS
     Route: 042
  3. CYCLOPHOSPHAMIDE [Suspect]
     Indication: HER-2 POSITIVE BREAST CANCER
     Dosage: 500 MG/M2 , ON DAY 1 OF A 21 DAY CYCLE FOR FOUR CYCLES, INTRAVENOUS
     Route: 042
  4. PACLITAXEL (PACLITAXEL) [Suspect]
     Indication: HER-2 POSITIVE BREAST CANCER
     Dosage: 80 MG/M*2 , ON DAYS 1, 8 ,  AND 15 OF A 21-DAY CYCLE FOR FOUR CYCLES, INTRAVENOUS
     Route: 042
  5. TRASTUZUMAB [Suspect]
     Indication: HER-2 POSITIVE BREAST CANCER
     Dosage: 4 MG/M*2, FIRST DOSE ON DAYS 1, 8, AND 15 OF 21-DAY CYCLE FOR FOUR CYCLES

REACTIONS (1)
  - Ejection fraction decreased [None]
